FAERS Safety Report 23182337 (Version 1)
Quarter: 2023Q4

REPORT INFORMATION
  Report Type: Spontaneous
  Country: US (occurrence: None)
  Receive Date: 20231114
  Receipt Date: 20231114
  Transmission Date: 20240110
  Serious: Yes (Other)
  Sender: FDA-Public Use
  Company Number: None

PATIENT
  Age: 60 Year
  Sex: Male

DRUGS (1)
  1. ABIRATERONE [Suspect]
     Active Substance: ABIRATERONE
     Dosage: FREQUENCY : DAILY;?
     Dates: start: 20231031

REACTIONS (6)
  - Nasopharyngitis [None]
  - Sinusitis [None]
  - Swelling face [None]
  - Drug hypersensitivity [None]
  - Eye swelling [None]
  - Food allergy [None]
